FAERS Safety Report 4753640-4 (Version None)
Quarter: 2005Q3

REPORT INFORMATION
  Report Type: 
  Country: None (occurrence: None)
  Receive Date: 20050824
  Receipt Date: 20050824
  Transmission Date: 20060218
  Serious: Yes (Hospitalization, Disabling)
  Sender: FDA-Public Use
  Company Number: 2005RR-00652

PATIENT
  Age: 38 Year
  Sex: Male

DRUGS (4)
  1. AMOXICILLIN [Suspect]
     Indication: KLEBSIELLA INFECTION
  2. AMOXICILLIN [Suspect]
     Indication: PILONIDAL CYST
  3. CLAVULANIC ACID [Suspect]
     Indication: KLEBSIELLA INFECTION
  4. CLAVULANIC ACID [Suspect]
     Indication: PILONIDAL CYST

REACTIONS (52)
  - ABDOMINAL PAIN [None]
  - ANEURYSM [None]
  - ANTINUCLEAR ANTIBODY POSITIVE [None]
  - ARTERIAL DISORDER [None]
  - ARTERIAL STENOSIS [None]
  - ARTHRITIS [None]
  - AUTOIMMUNE DISORDER [None]
  - BLINDNESS UNILATERAL [None]
  - BLOOD ALBUMIN DECREASED [None]
  - BLOOD AMYLASE INCREASED [None]
  - BLOOD IMMUNOGLOBULIN A DECREASED [None]
  - C-REACTIVE PROTEIN INCREASED [None]
  - COMPLEMENT FACTOR C4 DECREASED [None]
  - COMPUTERISED TOMOGRAM ABNORMAL [None]
  - CONJUNCTIVITIS [None]
  - DIARRHOEA HAEMORRHAGIC [None]
  - DYSPNOEA [None]
  - HAEMATOCRIT DECREASED [None]
  - HAPTOGLOBIN INCREASED [None]
  - HEART RATE INCREASED [None]
  - HEPATIC ARTERY STENOSIS [None]
  - LABORATORY TEST ABNORMAL [None]
  - LEUKOCYTOCLASTIC VASCULITIS [None]
  - LIPASE INCREASED [None]
  - LYMPHOCYTE PERCENTAGE DECREASED [None]
  - MONOCYTE PERCENTAGE DECREASED [None]
  - MUSCLE ABSCESS [None]
  - MYOSITIS [None]
  - NEUROPATHY [None]
  - NEUTROPHIL PERCENTAGE INCREASED [None]
  - OPTIC NEUROPATHY [None]
  - OXYGEN SATURATION DECREASED [None]
  - PAIN IN EXTREMITY [None]
  - PLATELET COUNT INCREASED [None]
  - PROTEIN TOTAL DECREASED [None]
  - PROTHROMBIN TIME PROLONGED [None]
  - PURPURA [None]
  - PYREXIA [None]
  - RED BLOOD CELL SEDIMENTATION RATE INCREASED [None]
  - RENAL ANEURYSM [None]
  - RESPIRATORY RATE INCREASED [None]
  - RETINAL EXUDATES [None]
  - RETINAL HAEMORRHAGE [None]
  - RETINAL INFARCTION [None]
  - RETINAL VASCULITIS [None]
  - TESTICULAR PAIN [None]
  - THROMBOPHLEBITIS SUPERFICIAL [None]
  - VASCULITIS [None]
  - VASCULITIS NECROTISING [None]
  - VISION BLURRED [None]
  - VISUAL ACUITY REDUCED [None]
  - VITRITIS [None]
